FAERS Safety Report 16774997 (Version 1)
Quarter: 2019Q3

REPORT INFORMATION
  Report Type: Spontaneous
  Country: FR (occurrence: FR)
  Receive Date: 20190905
  Receipt Date: 20190905
  Transmission Date: 20191005
  Serious: Yes (Hospitalization)
  Sender: FDA-Public Use
  Company Number: FR-ACCORD-153820

PATIENT
  Age: 54 Year
  Sex: Male
  Weight: 68 kg

DRUGS (5)
  1. ONDANSETRON ACCORD [Suspect]
     Active Substance: ONDANSETRON
     Indication: PROPHYLAXIS OF NAUSEA AND VOMITING
     Dosage: 8 MG, AT D1 AND D22/TREATMENT
     Route: 042
     Dates: start: 20190708, end: 20190729
  2. AMOXICILLIN CLAVULANIC ACID SANDOZ [Suspect]
     Active Substance: AMOXICILLIN\CLAVULANIC ACID
     Indication: PYREXIA
     Route: 042
     Dates: start: 20190730, end: 20190730
  3. SOLU-MEDROL [Suspect]
     Active Substance: METHYLPREDNISOLONE SODIUM SUCCINATE
     Indication: PROPHYLAXIS OF NAUSEA AND VOMITING
     Dosage: 80 MG D1 AND D22/TREATMENT
     Route: 065
     Dates: start: 20190708, end: 20190729
  4. CISPLATINE MYLAN [Suspect]
     Active Substance: CISPLATIN
     Indication: TONSIL CANCER
     Dosage: AT D1 AND D22
     Route: 042
     Dates: start: 20190708, end: 20190729
  5. EMEND [Suspect]
     Active Substance: APREPITANT
     Indication: PROPHYLAXIS OF NAUSEA AND VOMITING
     Dosage: 125 MG D1, 80 MG D2 D3/TREATMENT
     Route: 048
     Dates: start: 20190708, end: 20190729

REACTIONS (2)
  - Rash maculo-papular [Recovering/Resolving]
  - Hepatocellular injury [Not Recovered/Not Resolved]

NARRATIVE: CASE EVENT DATE: 20190730
